FAERS Safety Report 4423919-4 (Version None)
Quarter: 2004Q3

REPORT INFORMATION
  Report Type: 
  Country: None (occurrence: None)
  Receive Date: 20040806
  Receipt Date: 20040720
  Transmission Date: 20050211
  Serious: Yes (Death, Life-Threatening, Disabling)
  Sender: FDA-Public Use
  Company Number: JP_040603588

PATIENT
  Age: 65 Year
  Sex: Male
  Weight: 65 kg

DRUGS (16)
  1. VANCOMYCIN [Suspect]
     Indication: PNEUMONIA STAPHYLOCOCCAL
     Dosage: 500 MG/2 DAY
     Dates: start: 20031222, end: 20040214
  2. TARGOCID [Concomitant]
  3. HABEKACIN (ARBEKACIN) [Concomitant]
  4. GASTER (FAMOTIDINE) [Concomitant]
  5. MIDAZOLAM [Concomitant]
  6. VECURONIUM BROMIDE [Concomitant]
  7. REMINARON (GABEXATE MESILATE) [Concomitant]
  8. FLUMARIN (FLOMOXEF SODIUM) [Concomitant]
  9. MORPHINE HYDROCHLORIDE [Concomitant]
  10. SULPERAZON [Concomitant]
  11. DOPAMINE HYDROCHLORIDE [Concomitant]
  12. ZANTAC [Concomitant]
  13. ANTITHROMBIN III [Concomitant]
  14. MEROPEN (MEROPENEM) [Concomitant]
  15. DOBUTREX [Concomitant]
  16. PITRESSIN (VASOPRESSIN INJECTION) [Concomitant]

REACTIONS (4)
  - DISSEMINATED INTRAVASCULAR COAGULATION [None]
  - HEPATIC FUNCTION ABNORMAL [None]
  - PSEUDOMONAL SEPSIS [None]
  - RENAL FAILURE ACUTE [None]
